FAERS Safety Report 15207336 (Version 1)
Quarter: 2018Q3

REPORT INFORMATION
  Report Type: Spontaneous
  Country: IT (occurrence: IT)
  Receive Date: 20180727
  Receipt Date: 20180727
  Transmission Date: 20181010
  Serious: Yes (Hospitalization)
  Sender: FDA-Public Use
  Company Number: IT-PFIZER INC-2018300647

PATIENT
  Age: 48 Year
  Sex: Female

DRUGS (5)
  1. ENTUMIN [Suspect]
     Active Substance: CLOTHIAPINE
     Indication: DEPRESSION
     Dosage: 10 ML, SINGLE
     Route: 048
     Dates: start: 20180506, end: 20180506
  2. LUCEN [Concomitant]
     Active Substance: ESOMEPRAZOLE
     Indication: GASTROOESOPHAGEAL REFLUX DISEASE
     Dosage: 40 MG, 1X/DAY
     Route: 048
  3. DIFMETRE [Concomitant]
     Active Substance: CAFFEINE\INDOMETHACIN\PROCHLORPERAZINE MALEATE
     Indication: HEADACHE
     Dosage: UNK
     Route: 048
     Dates: start: 20170101
  4. TAVOR (LORAZEPAM) [Suspect]
     Active Substance: LORAZEPAM
     Dosage: 40 MG, SINGLE
     Route: 048
     Dates: start: 20180506, end: 20180506
  5. LEXOTAN [Concomitant]
     Active Substance: BROMAZEPAM
     Dosage: UNK
     Route: 048
     Dates: start: 20170101

REACTIONS (4)
  - Depressed level of consciousness [Recovering/Resolving]
  - Intentional self-injury [Recovering/Resolving]
  - Overdose [Recovering/Resolving]
  - Miosis [Recovering/Resolving]

NARRATIVE: CASE EVENT DATE: 201805
